FAERS Safety Report 5090732-7 (Version None)
Quarter: 2006Q3

REPORT INFORMATION
  Report Type: 
  Country: None (occurrence: None)
  Receive Date: 20060823
  Receipt Date: 20060808
  Transmission Date: 20061208
  Serious: Yes (Death, Other)
  Sender: FDA-Public Use
  Company Number: CAN-2006-0000343

PATIENT
  Age: 48 Year
  Sex: Male

DRUGS (5)
  1. HYDROMORPHONE HCL [Suspect]
     Indication: DRUG USE FOR UNKNOWN INDICATION
     Dosage: INTRAVENOUS
     Route: 042
  2. DIAZEPAM [Suspect]
  3. NORDAZEPAM (NORDAZEPAM) [Suspect]
  4. OXAZEPAM [Suspect]
  5. ETHANOL (ETHANOL) [Suspect]

REACTIONS (4)
  - DRUG ABUSER [None]
  - INJECTION SITE BRUISING [None]
  - PULMONARY CONGESTION [None]
  - PULMONARY OEDEMA [None]
